FAERS Safety Report 9733054 (Version 3)
Quarter: 2015Q3

REPORT INFORMATION
  Report Type: Spontaneous
  Country: US (occurrence: US)
  Receive Date: 20131204
  Receipt Date: 20150804
  Transmission Date: 20151125
  Serious: No
  Sender: FDA-Public Use
  Company Number: US-GILEAD-2009-0021958

PATIENT
  Age: 49 Year
  Sex: Female
  Weight: 48.53 kg

DRUGS (10)
  1. PAXIL [Concomitant]
     Active Substance: PAROXETINE HYDROCHLORIDE
  2. LETAIRIS [Suspect]
     Active Substance: AMBRISENTAN
     Indication: PULMONARY ARTERIAL HYPERTENSION
     Route: 048
     Dates: start: 20090125
  3. LASIX [Concomitant]
     Active Substance: FUROSEMIDE
  4. SIMVASTATIN. [Concomitant]
     Active Substance: SIMVASTATIN
  5. COUMADIN [Concomitant]
     Active Substance: WARFARIN SODIUM
  6. AMBIEN CR [Concomitant]
     Active Substance: ZOLPIDEM TARTRATE
  7. LETAIRIS [Suspect]
     Active Substance: AMBRISENTAN
     Route: 048
     Dates: start: 20090125
  8. ASPIRIN. [Concomitant]
     Active Substance: ASPIRIN
  9. LISINOPRIL. [Concomitant]
     Active Substance: LISINOPRIL
  10. LORAZEPAM. [Concomitant]
     Active Substance: LORAZEPAM

REACTIONS (1)
  - Liver function test abnormal [Unknown]
